FAERS Safety Report 12420937 (Version 2)
Quarter: 2016Q2

REPORT INFORMATION
  Report Type: Spontaneous
  Country: DE (occurrence: DE)
  Receive Date: 20160531
  Receipt Date: 20160629
  Transmission Date: 20160815
  Serious: Yes (Hospitalization)
  Sender: FDA-Public Use
  Company Number: DE-JNJFOC-20160518175

PATIENT
  Age: 81 Year
  Sex: Male
  Weight: 90 kg

DRUGS (2)
  1. IMBRUVICA [Suspect]
     Active Substance: IBRUTINIB
     Indication: MANTLE CELL LYMPHOMA
     Route: 048
     Dates: start: 20160305, end: 20160518
  2. ELIQUIS [Suspect]
     Active Substance: APIXABAN
     Indication: ANTICOAGULANT THERAPY
     Route: 048

REACTIONS (2)
  - Gastritis haemorrhagic [Recovering/Resolving]
  - Gastrointestinal angiodysplasia haemorrhagic [Recovering/Resolving]

NARRATIVE: CASE EVENT DATE: 20160316
